FAERS Safety Report 9634093 (Version 1)
Quarter: 2013Q4

REPORT INFORMATION
  Report Type: Spontaneous
  Country: FR (occurrence: FR)
  Receive Date: 20131021
  Receipt Date: 20131021
  Transmission Date: 20140711
  Serious: Yes (Other)
  Sender: FDA-Public Use
  Company Number: FR-BAYER-2013-126165

PATIENT
  Age: 33 Year
  Sex: Male

DRUGS (8)
  1. IZILOX [Suspect]
     Indication: PULMONARY TUBERCULOSIS
     Dosage: 400 MG, QD
     Route: 048
     Dates: start: 20120911
  2. ZYVOXID [Suspect]
     Indication: PULMONARY TUBERCULOSIS
     Dosage: 600 MG, UNK
     Route: 048
     Dates: start: 20120911, end: 20130724
  3. AMIKACINE [Suspect]
     Indication: PULMONARY TUBERCULOSIS
     Dosage: UNK
     Dates: start: 20120911, end: 20130320
  4. AMIKACINE [Suspect]
     Indication: PULMONARY TUBERCULOSIS
     Dosage: 550 MG, TIW
     Route: 042
     Dates: start: 20130531
  5. PASER [Suspect]
     Indication: PULMONARY TUBERCULOSIS
     Dosage: 16 G, QD
     Route: 048
     Dates: start: 20120911
  6. LYRICA [Concomitant]
     Indication: NEUROPATHY PERIPHERAL
     Dosage: 150 MG, QD
     Route: 048
     Dates: start: 20130628, end: 20130724
  7. AUGMENTIN [Concomitant]
     Dosage: UNK
     Dates: start: 20120911, end: 20130320
  8. TIENAM [Concomitant]
     Dosage: UNK
     Dates: start: 20120911, end: 20130320

REACTIONS (3)
  - Optic neuritis [Recovering/Resolving]
  - Visual acuity reduced [Recovering/Resolving]
  - Diplopia [Recovering/Resolving]
